FAERS Safety Report 17647671 (Version 5)
Quarter: 2021Q4

REPORT INFORMATION
  Report Type: Spontaneous
  Country: JP (occurrence: JP)
  Receive Date: 20200409
  Receipt Date: 20211105
  Transmission Date: 20220303
  Serious: Yes (Life-Threatening, Hospitalization)
  Sender: FDA-Public Use
  Company Number: JP-CHUGAI-A2020016910ROCHE

PATIENT
  Age: 79 Year
  Sex: Male
  Weight: 53 kg

DRUGS (19)
  1. MIRCERA [Suspect]
     Active Substance: METHOXY POLYETHYLENE GLYCOL-EPOETIN BETA
     Indication: Nephrogenic anaemia
     Route: 042
     Dates: start: 20200302
  2. MIRCERA [Suspect]
     Active Substance: METHOXY POLYETHYLENE GLYCOL-EPOETIN BETA
     Indication: Haemodialysis
     Dates: start: 2018
  3. MIRCERA [Suspect]
     Active Substance: METHOXY POLYETHYLENE GLYCOL-EPOETIN BETA
     Dates: start: 20200323
  4. MIRCERA [Suspect]
     Active Substance: METHOXY POLYETHYLENE GLYCOL-EPOETIN BETA
     Route: 058
     Dates: start: 20191218, end: 20191218
  5. MIRCERA [Suspect]
     Active Substance: METHOXY POLYETHYLENE GLYCOL-EPOETIN BETA
     Route: 058
     Dates: start: 20200119, end: 20200226
  6. MIRCERA [Suspect]
     Active Substance: METHOXY POLYETHYLENE GLYCOL-EPOETIN BETA
     Route: 042
     Dates: start: 20200311, end: 20200323
  7. MIRCERA [Suspect]
     Active Substance: METHOXY POLYETHYLENE GLYCOL-EPOETIN BETA
     Route: 042
  8. MIRCERA [Suspect]
     Active Substance: METHOXY POLYETHYLENE GLYCOL-EPOETIN BETA
     Route: 058
  9. CALCIUM CHLORIDE\DEXTROSE MONOHYDRATE\MAGNESIUM CHLORIDE\POTASSIUM CHL [Concomitant]
     Active Substance: CALCIUM CHLORIDE\DEXTROSE MONOHYDRATE\MAGNESIUM CHLORIDE\POTASSIUM CHLORIDE\SODIUM BICARBONATE\SODIU
     Dosage: DOSAGE IS UNCERTAIN.
     Route: 065
  10. ASPIRIN [Concomitant]
     Active Substance: ASPIRIN
     Route: 048
     Dates: start: 20121105
  11. CARVEDILOL [Concomitant]
     Active Substance: CARVEDILOL
     Route: 065
     Dates: start: 20121105
  12. LEVOTHYROXINE SODIUM [Concomitant]
     Active Substance: LEVOTHYROXINE SODIUM
     Route: 048
     Dates: start: 20130731
  13. RABEPRAZOLE SODIUM [Concomitant]
     Active Substance: RABEPRAZOLE SODIUM
     Route: 048
     Dates: start: 20121105
  14. AZOSEMIDE [Concomitant]
     Active Substance: AZOSEMIDE
     Route: 048
     Dates: start: 20121221
  15. FUROSEMIDE [Concomitant]
     Active Substance: FUROSEMIDE
     Route: 048
     Dates: start: 20130514
  16. ZINC [Concomitant]
     Active Substance: ZINC
     Route: 048
     Dates: start: 20200306
  17. LEVOCARNITINE [Concomitant]
     Active Substance: LEVOCARNITINE
     Route: 048
     Dates: start: 20200306
  18. CINACALCET HYDROCHLORIDE [Concomitant]
     Active Substance: CINACALCET HYDROCHLORIDE
     Route: 048
     Dates: start: 20200317
  19. CALONAL [Concomitant]
     Active Substance: ACETAMINOPHEN
     Route: 048
     Dates: start: 20200313

REACTIONS (20)
  - Anaphylactic shock [Recovered/Resolved]
  - Eye movement disorder [Unknown]
  - Syncope [Unknown]
  - Seizure [Recovering/Resolving]
  - Dyspnoea [Unknown]
  - Hypotension [Recovering/Resolving]
  - Altered state of consciousness [Unknown]
  - Muscle spasms [Unknown]
  - Pulseless electrical activity [Recovering/Resolving]
  - Cardio-respiratory arrest [Recovered/Resolved]
  - Respiratory failure [Unknown]
  - Haemoglobin decreased [Not Recovered/Not Resolved]
  - Anti-erythropoietin antibody [Unknown]
  - Therapeutic response decreased [Unknown]
  - Acetate intolerance [Unknown]
  - Discomfort [Unknown]
  - Dizziness [Unknown]
  - Hypervolaemia [Recovered/Resolved]
  - Folate deficiency [Unknown]
  - Headache [Unknown]

NARRATIVE: CASE EVENT DATE: 20200226
